FAERS Safety Report 23499676 (Version 4)
Quarter: 2025Q2

REPORT INFORMATION
  Report Type: Report from Study
  Country: CA (occurrence: CA)
  Receive Date: 20240208
  Receipt Date: 20250622
  Transmission Date: 20250716
  Serious: Yes (Death, Hospitalization)
  Sender: ABBVIE
  Company Number: CA-ABBVIE-5625970

PATIENT
  Age: 67 Year
  Sex: Male

DRUGS (14)
  1. VENETOCLAX [Suspect]
     Active Substance: VENETOCLAX
     Indication: Acute myeloid leukaemia
     Route: 048
     Dates: start: 20230725, end: 20230725
  2. VENETOCLAX [Suspect]
     Active Substance: VENETOCLAX
     Indication: Acute myeloid leukaemia
     Route: 048
     Dates: start: 20230726, end: 20230726
  3. VENETOCLAX [Suspect]
     Active Substance: VENETOCLAX
     Indication: Acute myeloid leukaemia
     Route: 048
     Dates: start: 20231108, end: 20231215
  4. VENETOCLAX [Suspect]
     Active Substance: VENETOCLAX
     Indication: Acute myeloid leukaemia
     Route: 048
     Dates: start: 20231010, end: 20231107
  5. VENETOCLAX [Suspect]
     Active Substance: VENETOCLAX
     Indication: Acute myeloid leukaemia
     Route: 048
     Dates: start: 20230828, end: 20230929
  6. VENETOCLAX [Suspect]
     Active Substance: VENETOCLAX
     Indication: Acute myeloid leukaemia
     Route: 048
     Dates: start: 20230727, end: 20230821
  7. AZACITIDINE [Suspect]
     Active Substance: AZACITIDINE
     Indication: Acute myeloid leukaemia
     Route: 065
     Dates: start: 20230905, end: 20230906
  8. AZACITIDINE [Suspect]
     Active Substance: AZACITIDINE
     Indication: Acute myeloid leukaemia
     Dosage: FREQUENCY TEXT: DAYS 1-7 OF EACH CYCLE
     Route: 065
     Dates: start: 20231108, end: 20231110
  9. AZACITIDINE [Suspect]
     Active Substance: AZACITIDINE
     Indication: Acute myeloid leukaemia
     Dosage: FREQUENCY TEXT: DAYS 1-7 OF EACH CYCLE
     Route: 065
     Dates: start: 20231114, end: 20231116
  10. AZACITIDINE [Suspect]
     Active Substance: AZACITIDINE
     Indication: Acute myeloid leukaemia
     Dosage: FREQUENCY TEXT: DAYS 1-7 OF EACH CYCLE
     Route: 065
     Dates: start: 20230828, end: 20230901
  11. AZACITIDINE [Suspect]
     Active Substance: AZACITIDINE
     Indication: Acute myeloid leukaemia
     Route: 065
     Dates: start: 20231010, end: 20231013
  12. AZACITIDINE [Suspect]
     Active Substance: AZACITIDINE
     Indication: Acute myeloid leukaemia
     Dosage: FREQUENCY TEXT: DAYS 1-7 OF EACH CYCLE
     Route: 065
     Dates: start: 20231016, end: 20231016
  13. AZACITIDINE [Suspect]
     Active Substance: AZACITIDINE
     Indication: Acute myeloid leukaemia
     Dosage: FREQUENCY TEXT: DAYS 1-7 PER CYCLE
     Route: 065
     Dates: start: 20230725, end: 20230731
  14. Covid 19 vaccine [Concomitant]
     Indication: COVID-19 prophylaxis

REACTIONS (4)
  - Blast cell count increased [Fatal]
  - White blood cell count increased [Fatal]
  - Facial paralysis [Unknown]
  - Dysarthria [Unknown]

NARRATIVE: CASE EVENT DATE: 20231201
